FAERS Safety Report 20036186 (Version 1)
Quarter: 2021Q4

REPORT INFORMATION
  Report Type: Spontaneous
  Country: US (occurrence: US)
  Receive Date: 20211105
  Receipt Date: 20211105
  Transmission Date: 20220303
  Serious: No
  Sender: FDA-Public Use
  Company Number: US-GSKCCFUS-Case-01204842_AE-70537

PATIENT
  Age: 45 Year
  Sex: Female

DRUGS (1)
  1. BENLYSTA [Suspect]
     Active Substance: BELIMUMAB
     Indication: Product used for unknown indication
     Dosage: 1 DF, WE
     Dates: start: 2019

REACTIONS (9)
  - Swelling [Unknown]
  - Inflammation [Unknown]
  - Inappropriate schedule of product administration [Unknown]
  - Back pain [Recovered/Resolved]
  - Chest pain [Recovered/Resolved]
  - Pain [Unknown]
  - Peripheral swelling [Unknown]
  - Lip swelling [Unknown]
  - Mouth swelling [Unknown]

NARRATIVE: CASE EVENT DATE: 20211001
